FAERS Safety Report 4644922-5 (Version None)
Quarter: 2005Q2

REPORT INFORMATION
  Report Type: 
  Country: None (occurrence: None)
  Receive Date: 20050426
  Receipt Date: 20050413
  Transmission Date: 20051028
  Serious: Yes (Hospitalization)
  Sender: FDA-Public Use
  Company Number: GBWYE583113APR05

PATIENT
  Sex: Male

DRUGS (3)
  1. ENBREL [Suspect]
     Indication: RHEUMATOID ARTHRITIS
     Route: 058
  2. IRBESARTAN [Concomitant]
     Indication: HYPERTENSION
     Route: 048
  3. OMEPRAZOLE [Concomitant]
     Route: 048

REACTIONS (2)
  - ISCHAEMIA [None]
  - PAIN IN EXTREMITY [None]
